FAERS Safety Report 7619252-X (Version None)
Quarter: 2011Q3

REPORT INFORMATION
  Report Type: 
  Country: None (occurrence: None)
  Receive Date: 20110718
  Receipt Date: 20110707
  Transmission Date: 20111222
  Serious: Yes (Other)
  Sender: FDA-Public Use
  Company Number: US-ASTRAZENECA-2011SE40759

PATIENT
  Age: 84 Year
  Sex: Female

DRUGS (15)
  1. TRACLEER [Concomitant]
     Route: 048
  2. KLOR-CON M20 [Concomitant]
     Route: 048
  3. LOVAZA [Concomitant]
     Route: 048
  4. ASPIRIN [Concomitant]
     Route: 048
  5. LASIX [Concomitant]
     Route: 048
  6. OXYGEN [Concomitant]
     Dosage: 2 L DURING DAY 1 L AT BEDTIME
  7. CRESTOR [Suspect]
     Route: 048
  8. METFORMIN HCL [Concomitant]
     Dosage: EVERY DAY WITH MORNING AND EVENING MEALS
     Route: 048
  9. CALCIUM+ D [Concomitant]
     Dosage: 600 MG-200
     Route: 048
  10. NIASPAN [Concomitant]
     Route: 048
  11. TOPROL-XL [Suspect]
     Route: 048
  12. ALENDRONATE SODIUM [Concomitant]
     Dosage: EVERY WEEK IN THE MORNING
     Route: 048
  13. REVATIO [Concomitant]
     Route: 048
  14. WARFARIN SODIUM [Concomitant]
     Dosage: AS REQUIRED
  15. HYDROCHLOROTHIAZIDE [Concomitant]
     Route: 048

REACTIONS (12)
  - EMBOLISM [None]
  - CARDIAC VALVE DISEASE [None]
  - ANTICOAGULANT THERAPY [None]
  - HYPERTENSION [None]
  - PULMONARY HYPERTENSION [None]
  - CHEST PAIN [None]
  - EXTRASYSTOLES [None]
  - ACTIVITIES OF DAILY LIVING IMPAIRED [None]
  - DYSLIPIDAEMIA [None]
  - HYPERCHOLESTEROLAEMIA [None]
  - CORONARY ARTERY DISEASE [None]
  - CHRONIC RIGHT VENTRICULAR FAILURE [None]
